FAERS Safety Report 6406781-X (Version None)
Quarter: 2009Q4

REPORT INFORMATION
  Report Type: 
  Country: None (occurrence: None)
  Receive Date: 20091020
  Receipt Date: 20091007
  Transmission Date: 20100525
  Serious: Yes (Hospitalization)
  Sender: FDA-Public Use
  Company Number: FR-PFIZER INC-2009272836

PATIENT
  Age: 48 Year

DRUGS (6)
  1. XANAX [Suspect]
     Indication: DRUG TOXICITY
     Dosage: UNK
     Route: 048
     Dates: start: 20090813, end: 20090813
  2. IBUPROFEN [Suspect]
     Dosage: 400 MG, UNK
     Route: 048
     Dates: end: 20090813
  3. ACETAMINOPHEN [Suspect]
     Indication: DRUG TOXICITY
     Dosage: 500 MG, UNK
     Route: 048
     Dates: start: 20090813, end: 20090813
  4. NOCTRAN 10 [Suspect]
     Indication: DRUG TOXICITY
     Dosage: 10 MG, UNK
     Route: 048
     Dates: start: 20090813, end: 20090813
  5. ZYPREXA [Suspect]
     Dosage: 5 MG, 1X/DAY
     Route: 048
     Dates: end: 20090813
  6. IXEL [Suspect]
     Indication: DEPRESSION
     Dosage: 50 MG, 3X/DAY
     Route: 048
     Dates: end: 20090813

REACTIONS (6)
  - COMA [None]
  - CYTOLYTIC HEPATITIS [None]
  - PNEUMONIA ASPIRATION [None]
  - PULMONARY EMBOLISM [None]
  - RENAL FAILURE ACUTE [None]
  - SUICIDE ATTEMPT [None]
